FAERS Safety Report 16295033 (Version 2)
Quarter: 2020Q2

REPORT INFORMATION
  Report Type: Spontaneous
  Country: US (occurrence: US)
  Receive Date: 20190509
  Receipt Date: 20200505
  Transmission Date: 20200713
  Serious: No
  Sender: FDA-Public Use
  Company Number: US-ROCHE-2208235

PATIENT
  Sex: Female

DRUGS (2)
  1. ESBRIET [Suspect]
     Active Substance: PIRFENIDONE
     Indication: IDIOPATHIC PULMONARY FIBROSIS
     Route: 048
     Dates: start: 20180605
  2. ESBRIET [Suspect]
     Active Substance: PIRFENIDONE
     Route: 065

REACTIONS (3)
  - Frequent bowel movements [Unknown]
  - Chest pain [Unknown]
  - Malaise [Unknown]
